FAERS Safety Report 8110903-2 (Version None)
Quarter: 2012Q1

REPORT INFORMATION
  Report Type: 
  Country: None (occurrence: None)
  Receive Date: 20120201
  Receipt Date: 20120201
  Transmission Date: 20120608
  Serious: No
  Sender: FDA-Public Use
  Company Number: None

PATIENT
  Sex: Female

DRUGS (1)
  1. CLONAZEPAM [Suspect]
     Indication: PANIC ATTACK
     Dosage: 0.5 MG 1 PO QID PM ORAL
     Route: 048
     Dates: start: 20120118, end: 20120122

REACTIONS (2)
  - PANIC ATTACK [None]
  - PRODUCT SUBSTITUTION ISSUE [None]
